FAERS Safety Report 6252646-6 (Version None)
Quarter: 2009Q3

REPORT INFORMATION
  Report Type: 
  Country: None (occurrence: None)
  Receive Date: 20090701
  Receipt Date: 20090630
  Transmission Date: 20100115
  Serious: No
  Sender: FDA-Public Use
  Company Number: DE-WYE-G03755609

PATIENT
  Sex: Male
  Weight: 72 kg

DRUGS (7)
  1. TREVILOR RETARD [Suspect]
     Indication: DEPRESSION
     Route: 048
     Dates: start: 20090429, end: 20090506
  2. TREVILOR RETARD [Suspect]
     Route: 048
     Dates: start: 20090507, end: 20090513
  3. TREVILOR RETARD [Suspect]
     Route: 048
     Dates: start: 20090514, end: 20090501
  4. TREVILOR RETARD [Suspect]
     Route: 048
     Dates: start: 20090501
  5. BISOPROLOL FUMARATE [Concomitant]
     Indication: HYPERTENSION
     Route: 048
     Dates: start: 20090331
  6. LORZAAR PLUS [Concomitant]
     Indication: HYPERTENSION
     Dosage: 12.5/50 MG PER DAY
     Route: 048
     Dates: start: 20090331
  7. MIRTAZAPINE [Concomitant]
     Indication: DEPRESSION
     Route: 048
     Dates: start: 20090331

REACTIONS (1)
  - PERSECUTORY DELUSION [None]
